FAERS Safety Report 10229904 (Version 1)
Quarter: 2014Q2

REPORT INFORMATION
  Report Type: Report from Study
  Country: US (occurrence: US)
  Receive Date: 20140611
  Receipt Date: 20140611
  Transmission Date: 20141212
  Serious: Yes (Other)
  Sender: FDA-Public Use
  Company Number: US-ABBVIE-14P-163-1243335-00

PATIENT
  Age: 41 Year
  Sex: Male
  Weight: 67.19 kg

DRUGS (5)
  1. HUMIRA [Suspect]
     Indication: CROHN^S DISEASE
     Dates: start: 2012, end: 2012
  2. HUMIRA [Suspect]
     Dates: start: 2012, end: 2012
  3. HUMIRA [Suspect]
     Dates: start: 2012, end: 2013
  4. HUMIRA [Suspect]
     Dates: start: 2013, end: 20140315
  5. 6-MP [Concomitant]
     Indication: CROHN^S DISEASE

REACTIONS (9)
  - Intraocular pressure increased [Not Recovered/Not Resolved]
  - Eye disorder [Not Recovered/Not Resolved]
  - Tympanic membrane perforation [Recovered/Resolved]
  - Parainfluenzae virus infection [Recovered/Resolved]
  - Weight decreased [Not Recovered/Not Resolved]
  - Diarrhoea [Not Recovered/Not Resolved]
  - Sinusitis [Recovered/Resolved]
  - Muscle spasms [Not Recovered/Not Resolved]
  - Crohn^s disease [Not Recovered/Not Resolved]
